FAERS Safety Report 15394133 (Version 1)
Quarter: 2018Q3

REPORT INFORMATION
  Report Type: Report from Study
  Country: None (occurrence: US)
  Receive Date: 20180918
  Receipt Date: 20180918
  Transmission Date: 20181010
  Serious: Yes (Other)
  Sender: FDA-Public Use
  Company Number: US-ABBVIE-18K-163-2428448-00

PATIENT
  Age: 54 Year
  Sex: Male
  Weight: 118.04 kg

DRUGS (3)
  1. OMEPRAZOLE. [Concomitant]
     Active Substance: OMEPRAZOLE
     Indication: DYSPEPSIA
  2. HUMIRA [Suspect]
     Active Substance: ADALIMUMAB
     Indication: PSORIASIS
     Route: 058
     Dates: start: 201806, end: 20180812
  3. TOLTERODINE [Concomitant]
     Active Substance: TOLTERODINE
     Indication: HYPERTONIC BLADDER

REACTIONS (2)
  - Abdominal pain [Not Recovered/Not Resolved]
  - Gallbladder hyperfunction [Recovered/Resolved]

NARRATIVE: CASE EVENT DATE: 201807
